FAERS Safety Report 13233300 (Version 4)
Quarter: 2017Q2

REPORT INFORMATION
  Report Type: Report from Study
  Country: IT (occurrence: IT)
  Receive Date: 20170215
  Receipt Date: 20170511
  Transmission Date: 20170830
  Serious: Yes (Hospitalization)
  Sender: FDA-Public Use
  Company Number: IT-009507513-1702ITA003961

PATIENT
  Age: 28 Year
  Sex: Female

DRUGS (1)
  1. MIRTAZAPINE. [Suspect]
     Active Substance: MIRTAZAPINE
     Indication: DRUG USE DISORDER
     Dosage: 12 TABLETS, 360 MG, TOTAL
     Route: 048
     Dates: start: 20170202, end: 20170202

REACTIONS (3)
  - Intentional self-injury [Recovered/Resolved]
  - Drug use disorder [Recovered/Resolved]
  - Sinus tachycardia [Recovered/Resolved]

NARRATIVE: CASE EVENT DATE: 20170202
